FAERS Safety Report 8498449-3 (Version None)
Quarter: 2012Q3

REPORT INFORMATION
  Report Type: 
  Country: None (occurrence: None)
  Receive Date: 20120709
  Receipt Date: 20120625
  Transmission Date: 20120928
  Serious: No
  Sender: FDA-Public Use
  Company Number: US-AMGEN-USASP2012039294

PATIENT
  Age: 32 Year
  Sex: Female

DRUGS (1)
  1. ENBREL [Suspect]
     Indication: PSORIASIS
     Dosage: 50 MG, QWK
     Dates: start: 20101001

REACTIONS (3)
  - LIVER FUNCTION TEST ABNORMAL [None]
  - ANTINUCLEAR ANTIBODY INCREASED [None]
  - PSORIATIC ARTHROPATHY [None]
